FAERS Safety Report 8387599-8 (Version None)
Quarter: 2012Q2

REPORT INFORMATION
  Report Type: 
  Country: None (occurrence: None)
  Receive Date: 20120525
  Receipt Date: 20120521
  Transmission Date: 20120825
  Serious: Yes (Other)
  Sender: FDA-Public Use
  Company Number: IT-ROXANE LABORATORIES, INC.-2012-RO-01286RO

PATIENT
  Age: 48 Year
  Sex: Male
  Weight: 87 kg

DRUGS (2)
  1. MIDAZOLAM [Suspect]
     Dosage: 3 MG
  2. BUPIVACAINE HCL [Suspect]
     Indication: SPINAL ANAESTHESIA
     Dosage: 7 MG

REACTIONS (6)
  - BRADYCARDIA [None]
  - VOMITING [None]
  - BLOOD PRESSURE SYSTOLIC DECREASED [None]
  - OXYGEN SATURATION DECREASED [None]
  - PALLOR [None]
  - DYSPNOEA [None]
